FAERS Safety Report 23559871 (Version 2)
Quarter: 2024Q1

REPORT INFORMATION
  Report Type: Spontaneous
  Country: US (occurrence: US)
  Receive Date: 20240223
  Receipt Date: 20240228
  Transmission Date: 20240410
  Serious: No
  Sender: FDA-Public Use
  Company Number: US-002147023-NVSC2024US038397

PATIENT
  Sex: Female
  Weight: 106 kg

DRUGS (1)
  1. KYMRIAH [Suspect]
     Active Substance: TISAGENLECLEUCEL
     Indication: Diffuse large B-cell lymphoma
     Dosage: 5.9 UNK, ONCE/SINGLE (5.9E8 CAR-POSITIVE VIABLE T CELLS)
     Route: 065

REACTIONS (1)
  - Condition aggravated [Unknown]
